FAERS Safety Report 20694636 (Version 3)
Quarter: 2022Q2

REPORT INFORMATION
  Report Type: Report from Study
  Country: BR (occurrence: BR)
  Receive Date: 20220411
  Receipt Date: 20220429
  Transmission Date: 20220721
  Serious: Yes (Other)
  Sender: FDA-Public Use
  Company Number: BR-NOVARTISPH-NVSC2021BR171820

PATIENT
  Age: 52 Year
  Sex: Female
  Weight: 67 kg

DRUGS (5)
  1. COSENTYX [Suspect]
     Active Substance: SECUKINUMAB
     Indication: Ankylosing spondylitis
     Dosage: 150 MG, QMO
     Route: 065
     Dates: start: 20200303
  2. COSENTYX [Suspect]
     Active Substance: SECUKINUMAB
     Dosage: 150 MG
     Route: 065
  3. COSENTYX [Suspect]
     Active Substance: SECUKINUMAB
     Dosage: UNK
     Route: 065
     Dates: start: 20220403
  4. ASTRO [Concomitant]
     Indication: Product used for unknown indication
     Dosage: 500 (DID NOT DETAILED)
     Route: 065
     Dates: start: 20211004
  5. OMEPRAZOLE [Concomitant]
     Active Substance: OMEPRAZOLE
     Indication: Product used for unknown indication
     Dosage: UNK
     Route: 065
     Dates: start: 20211004

REACTIONS (8)
  - Hypertension [Recovering/Resolving]
  - Pain in extremity [Not Recovered/Not Resolved]
  - Pain [Not Recovered/Not Resolved]
  - Cough [Recovering/Resolving]
  - Chest discomfort [Recovered/Resolved]
  - Upper limb fracture [Not Recovered/Not Resolved]
  - Urinary tract infection [Recovered/Resolved]
  - Heart rate increased [Recovering/Resolving]

NARRATIVE: CASE EVENT DATE: 20211004
